FAERS Safety Report 7830756-7 (Version None)
Quarter: 2011Q4

REPORT INFORMATION
  Report Type: 
  Country: None (occurrence: None)
  Receive Date: 20111021
  Receipt Date: 20111012
  Transmission Date: 20120403
  Serious: Yes (Hospitalization)
  Sender: FDA-Public Use
  Company Number: US-GLAXOSMITHKLINE-A0845025A

PATIENT
  Age: 55 Year
  Sex: Male
  Weight: 106.8 kg

DRUGS (5)
  1. LISINOPRIL [Concomitant]
  2. METFORMIN HCL [Concomitant]
  3. GLIPIZIDE [Concomitant]
  4. SIMVASTATIN [Concomitant]
  5. AVANDIA [Suspect]
     Indication: DIABETES MELLITUS
     Dosage: 2MG PER DAY
     Route: 048
     Dates: start: 20090903, end: 20090101

REACTIONS (2)
  - MYOCARDIAL INFARCTION [None]
  - CARDIAC DISORDER [None]
